FAERS Safety Report 15746643 (Version 2)
Quarter: 2019Q1

REPORT INFORMATION
  Report Type: Spontaneous
  Country: US (occurrence: US)
  Receive Date: 20181220
  Receipt Date: 20190216
  Transmission Date: 20190417
  Serious: Yes (Hospitalization)
  Sender: FDA-Public Use
  Company Number: US-PRINSTON PHARMACEUTICAL INC.-2018PRN01613

PATIENT
  Sex: Female
  Weight: 62.59 kg

DRUGS (10)
  1. VALSARTAN. [Suspect]
     Active Substance: VALSARTAN
     Indication: EJECTION FRACTION DECREASED
  2. VALSARTAN. [Suspect]
     Active Substance: VALSARTAN
     Indication: MYOCARDIAL INFARCTION
     Dosage: 40 MG, 2X/DAY
     Route: 048
     Dates: start: 20180711, end: 201807
  3. IRON [Concomitant]
     Active Substance: IRON
     Dosage: EVERY OTHER DAY
  4. BABY ASPIRIN [Concomitant]
     Active Substance: ASPIRIN
  5. VITAMIN D [Concomitant]
     Active Substance: CHOLECALCIFEROL
     Dosage: EVERY OTHER WEEK
  6. MAGNESIUM [Concomitant]
     Active Substance: MAGNESIUM
  7. LISINOPRIL. [Suspect]
     Active Substance: LISINOPRIL
     Dosage: UNK
     Dates: start: 201807, end: 2018
  8. UNSPECIFIED STATIN [Concomitant]
  9. COENZYME Q10 [Concomitant]
     Active Substance: UBIDECARENONE
  10. VITAMIN C [Concomitant]
     Active Substance: ASCORBIC ACID
     Dosage: EVERY OTHER DAY

REACTIONS (4)
  - Malaise [Recovered/Resolved]
  - Chest discomfort [Recovered/Resolved]
  - Blood pressure decreased [Recovering/Resolving]
  - Dizziness [Recovering/Resolving]

NARRATIVE: CASE EVENT DATE: 2018
